FAERS Safety Report 10161695 (Version 1)
Quarter: 2014Q2

REPORT INFORMATION
  Report Type: Spontaneous
  Country: US (occurrence: US)
  Receive Date: 20140509
  Receipt Date: 20140509
  Transmission Date: 20141212
  Serious: No
  Sender: FDA-Public Use
  Company Number: US-009507513-1405USA003421

PATIENT
  Age: 26 Year
  Sex: Female

DRUGS (1)
  1. NUVARING [Suspect]
     Indication: CONTRACEPTION
     Dosage: FREQ: 3 WEEKS IN 1 WEEK OUT
     Route: 067
     Dates: start: 20140421

REACTIONS (3)
  - Vulvovaginal swelling [Unknown]
  - Dysmenorrhoea [Unknown]
  - Vaginal discharge [Unknown]
